FAERS Safety Report 13490683 (Version 2)
Quarter: 2017Q2

REPORT INFORMATION
  Report Type: Spontaneous
  Country: JP (occurrence: JP)
  Receive Date: 20170427
  Receipt Date: 20170608
  Transmission Date: 20170830
  Serious: Yes (Other)
  Sender: FDA-Public Use
  Company Number: JP-MYLANLABS-2017M1024946

PATIENT

DRUGS (3)
  1. PREDNISOLONE MYLAN [Suspect]
     Active Substance: PREDNISOLONE
     Indication: AUTOIMMUNE HEPATITIS
     Dosage: 50 MG, QD
     Route: 048
  2. PREDNISOLONE MYLAN [Suspect]
     Active Substance: PREDNISOLONE
     Indication: ASTHMA
     Dosage: 2.0 MG, QD
     Route: 048
  3. PREDNISOLONE MYLAN [Suspect]
     Active Substance: PREDNISOLONE
     Dosage: 40 MG, QD
     Route: 048

REACTIONS (6)
  - Pyrexia [Recovered/Resolved]
  - Malaise [Recovered/Resolved]
  - Vomiting [Recovered/Resolved]
  - Steroid withdrawal syndrome [Recovered/Resolved]
  - Blood pressure decreased [Recovered/Resolved]
  - Nausea [Recovered/Resolved]
